FAERS Safety Report 5494667-7 (Version None)
Quarter: 2007Q4

REPORT INFORMATION
  Report Type: 
  Country: None (occurrence: None)
  Receive Date: 20071023
  Receipt Date: 20071023
  Transmission Date: 20080405
  Serious: Yes (Life-Threatening)
  Sender: FDA-Public Use
  Company Number: None

PATIENT
  Age: 63 Year
  Sex: Male
  Weight: 102.9665 kg

DRUGS (2)
  1. AMIODARONE HCL [Suspect]
     Indication: ATRIAL FIBRILLATION
     Dosage: 100 BID PO
     Route: 048
     Dates: start: 20071001, end: 20071020
  2. AMIODARONE HCL [Suspect]
     Indication: ATRIAL FIBRILLATION
     Dosage: 400 MG BID IV
     Route: 042
     Dates: start: 20071001, end: 20071020

REACTIONS (11)
  - ATRIAL FIBRILLATION [None]
  - BELLIGERENCE [None]
  - CHEST PAIN [None]
  - CONDITION AGGRAVATED [None]
  - DYSPNOEA [None]
  - EJECTION FRACTION DECREASED [None]
  - HYPERHIDROSIS [None]
  - PARAESTHESIA [None]
  - PULMONARY FUNCTION TEST DECREASED [None]
  - RESTLESSNESS [None]
  - WEANING FAILURE [None]
